FAERS Safety Report 8836171 (Version 1)
Quarter: 2012Q4

REPORT INFORMATION
  Report Type: 
  Country: US (occurrence: US)
  Receive Date: 20121011
  Receipt Date: 20121011
  Transmission Date: 20130627
  Serious: Yes (Hospitalization, Other)
  Sender: FDA-Public Use
  Company Number: US-009507513-2010SP009218

PATIENT

DRUGS (1)
  1. NUVARING [Suspect]
     Indication: CONTRACEPTION
     Dates: start: 2003, end: 200803

REACTIONS (25)
  - Pneumonia [Recovering/Resolving]
  - Pyelonephritis [Unknown]
  - Sickle cell anaemia with crisis [Recovering/Resolving]
  - Respiratory arrest [Unknown]
  - Pulmonary embolism [Unknown]
  - Pulmonary infarction [Unknown]
  - Cholelithiasis [Unknown]
  - Bone lesion [Unknown]
  - Pregnancy [Unknown]
  - Pruritus generalised [Unknown]
  - Vulvovaginal mycotic infection [Unknown]
  - Sickle cell anaemia with crisis [Unknown]
  - Sickle cell anaemia with crisis [Unknown]
  - Drug ineffective [Unknown]
  - Stress [Unknown]
  - Nausea [Unknown]
  - Vomiting [Unknown]
  - Decreased appetite [Unknown]
  - Pulmonary hypertension [Unknown]
  - Vena cava filter insertion [Unknown]
  - Thromboembolectomy [Unknown]
  - Lung infiltration [Unknown]
  - Pleural fibrosis [Unknown]
  - Cardiomegaly [Unknown]
  - Acute chest syndrome [Unknown]
